FAERS Safety Report 7037227-9 (Version None)
Quarter: 2010Q4

REPORT INFORMATION
  Report Type: 
  Country: None (occurrence: None)
  Receive Date: 20101011
  Receipt Date: 20101007
  Transmission Date: 20110411
  Serious: Yes (Death, Hospitalization)
  Sender: FDA-Public Use
  Company Number: IT-ROCHE-730239

PATIENT
  Sex: Female

DRUGS (4)
  1. ROCEPHIN [Suspect]
     Dosage: FREQUENCY: DAILY
     Route: 030
     Dates: start: 20100920, end: 20100920
  2. TRASITENSIN [Concomitant]
     Indication: ESSENTIAL HYPERTENSION
     Dosage: FORM: OS
     Route: 048
     Dates: start: 20100101, end: 20100920
  3. SEREUPIN [Concomitant]
     Dosage: FORM: OS
     Route: 048
     Dates: start: 20050101, end: 20100920
  4. CLENIL [Concomitant]
     Indication: BRONCHITIS
     Dosage: DRUG NAME: CLENILEXX
     Route: 055
     Dates: start: 20100913, end: 20100920

REACTIONS (4)
  - ANAPHYLACTIC SHOCK [None]
  - BRAIN DEATH [None]
  - CARDIAC ARREST [None]
  - CARDIAC DEATH [None]
